FAERS Safety Report 15649719 (Version 5)
Quarter: 2018Q4

REPORT INFORMATION
  Report Type: Report from Study
  Country: US (occurrence: US)
  Receive Date: 20181122
  Receipt Date: 20181212
  Transmission Date: 20190205
  Serious: Yes (Hospitalization, Other)
  Sender: FDA-Public Use
  Company Number: US-ALEXION PHARMACEUTICALS INC.-A201815253

PATIENT
  Sex: Female

DRUGS (1)
  1. SOLIRIS [Suspect]
     Active Substance: ECULIZUMAB
     Indication: ATYPICAL HAEMOLYTIC URAEMIC SYNDROME
     Dosage: 900 MG, WEEKLY
     Route: 042
     Dates: start: 20181108

REACTIONS (9)
  - Haemoglobin decreased [Unknown]
  - Oedema [Not Recovered/Not Resolved]
  - Fatigue [Unknown]
  - Deafness unilateral [Unknown]
  - Weight increased [Unknown]
  - Pallor [Unknown]
  - Cardiac failure congestive [Unknown]
  - Pneumonia [Unknown]
  - Dyspnoea [Unknown]

NARRATIVE: CASE EVENT DATE: 20181115
